FAERS Safety Report 25996945 (Version 1)
Quarter: 2025Q4

REPORT INFORMATION
  Report Type: Spontaneous
  Country: EU (occurrence: EU)
  Receive Date: 20251104
  Receipt Date: 20251104
  Transmission Date: 20260117
  Serious: Yes (Life-Threatening, Hospitalization, Other)
  Sender: BRISTOL-MYERS SQUIBB COMPANY
  Company Number: None

PATIENT
  Age: 75 Year
  Sex: Female

DRUGS (2)
  1. OPDIVO [Suspect]
     Active Substance: NIVOLUMAB
     Indication: Renal cancer metastatic
     Dosage: 3 MG/KG (189 MG) EVERY 21 DAYS
     Route: 042
     Dates: start: 20250519
  2. YERVOY [Suspect]
     Active Substance: IPILIMUMAB
     Indication: Renal cancer metastatic
     Dosage: 1 MG/KG (63 MG) EVERY 21 DAYS
     Route: 042
     Dates: start: 20250519

REACTIONS (2)
  - Hypertransaminasaemia [Recovering/Resolving]
  - Myocarditis-myositis-myasthenia gravis overlap syndrome [Recovering/Resolving]

NARRATIVE: CASE EVENT DATE: 20250612
